FAERS Safety Report 5063268-7 (Version None)
Quarter: 2006Q3

REPORT INFORMATION
  Report Type: 
  Country: None (occurrence: None)
  Receive Date: 20060724
  Receipt Date: 20060724
  Transmission Date: 20061208
  Serious: No
  Sender: FDA-Public Use
  Company Number: None

PATIENT
  Age: 66 Year
  Sex: Male
  Weight: 77.1115 kg

DRUGS (2)
  1. BANANA BOAT ULTRA MIST SPORT SPF 30 SUN PHARMACEUTICALS CORP. [Suspect]
     Indication: PROPHYLAXIS
     Dosage: SPRAY TOP
     Route: 061
     Dates: start: 20060601
  2. BANANA BOAT ULTRA MIST SPORT SPF 30 SUN PHARMACEUTICALS CORP. [Suspect]
     Indication: SUNBURN
     Dosage: SPRAY TOP
     Route: 061
     Dates: start: 20060601

REACTIONS (4)
  - BLISTER [None]
  - PAIN [None]
  - SCAR [None]
  - THERMAL BURN [None]
